FAERS Safety Report 25610661 (Version 1)
Quarter: 2025Q3

REPORT INFORMATION
  Report Type: Spontaneous
  Country: CN (occurrence: CN)
  Receive Date: 20250728
  Receipt Date: 20250728
  Transmission Date: 20251020
  Serious: Yes (Other)
  Sender: APOTEX
  Company Number: CN-GKKIN-20180511-PI423107

PATIENT

DRUGS (1)
  1. PAROXETINE [Suspect]
     Active Substance: PAROXETINE
     Indication: Major depression
     Dosage: 20 MG, QD
     Route: 065

REACTIONS (1)
  - Bipolar disorder [Unknown]
